FAERS Safety Report 5876381-9 (Version None)
Quarter: 2008Q3

REPORT INFORMATION
  Report Type: 
  Country: None (occurrence: None)
  Receive Date: 20080910
  Receipt Date: 20080828
  Transmission Date: 20090109
  Serious: Yes (Other)
  Sender: FDA-Public Use
  Company Number: US-BAYER-200823499NA

PATIENT
  Age: 29 Year
  Sex: Female
  Weight: 88 kg

DRUGS (3)
  1. MIRENA [Suspect]
     Indication: CONTRACEPTION
     Route: 015
     Dates: start: 20071031, end: 20080320
  2. SYNTHROID [Concomitant]
  3. ADVIL [Concomitant]

REACTIONS (4)
  - HYDROMETRA [None]
  - IUD MIGRATION [None]
  - PELVIC PAIN [None]
  - PROCEDURAL PAIN [None]
